FAERS Safety Report 6832148-6 (Version None)
Quarter: 2010Q3

REPORT INFORMATION
  Report Type: 
  Country: None (occurrence: None)
  Receive Date: 20100712
  Receipt Date: 20100630
  Transmission Date: 20110219
  Serious: Yes (Hospitalization)
  Sender: FDA-Public Use
  Company Number: FR-ELI_LILLY_AND_COMPANY-FR201006007742

PATIENT
  Sex: Female

DRUGS (9)
  1. BYETTA [Suspect]
     Indication: TYPE 2 DIABETES MELLITUS
     Dosage: 5 UG, UNKNOWN
     Route: 058
     Dates: start: 20100508
  2. TRIATEC [Concomitant]
     Indication: HYPERTENSION
     Dosage: 3.75 MG, DAILY (1/D)
     Route: 048
  3. CRESTOR [Concomitant]
     Indication: PROPHYLAXIS
     Dosage: 10 MG, DAILY (1/D)
     Route: 048
  4. NEXIUM [Concomitant]
     Indication: GASTRIC ULCER
     Dosage: 20 MG, DAILY (1/D)
     Route: 048
  5. REVATIO [Concomitant]
     Indication: PULMONARY ARTERIAL HYPERTENSION
     Dosage: 20 MG, UNK
     Route: 048
  6. PREVISCAN [Concomitant]
     Indication: ARRHYTHMIA
     Dosage: 20 MG, UNK
     Route: 048
  7. HEMIGOXINE NATIVELLE [Concomitant]
     Indication: CARDIAC FAILURE
     Dosage: 0.125 MG, DAILY (1/D)
     Route: 048
  8. HUMALOG [Concomitant]
     Indication: DIABETES MELLITUS
     Route: 058
  9. DIFFU K [Concomitant]
     Indication: BLOOD POTASSIUM DECREASED
     Dosage: 6 D/F, DAILY (1/D)
     Route: 048

REACTIONS (3)
  - LOCALISED OEDEMA [None]
  - OFF LABEL USE [None]
  - SLEEP DISORDER [None]
